FAERS Safety Report 10083473 (Version 1)
Quarter: 2014Q2

REPORT INFORMATION
  Report Type: Spontaneous
  Country: FR (occurrence: None)
  Receive Date: 20140415
  Receipt Date: 20140415
  Transmission Date: 20141212
  Serious: Yes (Other)
  Sender: FDA-Public Use
  Company Number: NL01PV14.35592

PATIENT
  Age: 50 Year
  Sex: Female

DRUGS (11)
  1. ZOLPIDEM [Suspect]
     Indication: BIPOLAR I DISORDER
     Dates: start: 20061030
  2. ZOLPIDEM [Suspect]
     Indication: HYPOMANIA
     Dates: start: 20061030
  3. LYSANXIA [Suspect]
     Indication: BIPOLAR I DISORDER
     Route: 048
     Dates: start: 20061030
  4. LYSANXIA [Suspect]
     Indication: HYPOMANIA
     Route: 048
     Dates: start: 20061030
  5. TERCIAN /00759301/ [Suspect]
     Indication: BIPOLAR I DISORDER
     Dates: start: 20061030
  6. TERCIAN /00759301/ [Suspect]
     Indication: HYPOMANIA
     Dates: start: 20061030
  7. TANAKAN (GINKGO BILOBA EXTRACT) [Concomitant]
  8. FORLAX/00754501) MACROGOL [Concomitant]
  9. TRIMEBUTINE BIOGARAN (TRIMEBUTINE MALEATE) [Concomitant]
  10. EFFERALGAN/00020001/ (PARACETAMOL) [Concomitant]
  11. FLUIMUCIL (ACETYLCYSTEINE) [Concomitant]

REACTIONS (5)
  - Disturbance in attention [None]
  - Disturbance in attention [None]
  - Impaired driving ability [None]
  - Road traffic accident [None]
  - Emotional disorder [None]
